FAERS Safety Report 7355278-1 (Version None)
Quarter: 2011Q1

REPORT INFORMATION
  Report Type: 
  Country: None (occurrence: None)
  Receive Date: 20110316
  Receipt Date: 20110308
  Transmission Date: 20110831
  Serious: Yes (Death, Other)
  Sender: FDA-Public Use
  Company Number: GB-GENZYME-THYM-1002351

PATIENT
  Sex: Male
  Weight: 74.6 kg

DRUGS (2)
  1. CICLOSPORIN [Concomitant]
     Indication: APLASTIC ANAEMIA
     Dosage: 175 MG, QD
     Route: 048
     Dates: start: 20100223, end: 20101011
  2. THYMOGLOBULIN [Suspect]
     Indication: APLASTIC ANAEMIA
     Dosage: 267.5 MG, QD
     Route: 042
     Dates: start: 20100224, end: 20100228

REACTIONS (5)
  - BACTERIAL INFECTION [None]
  - HUMAN RHINOVIRUS TEST POSITIVE [None]
  - MULTI-ORGAN FAILURE [None]
  - ANAEMIA HAEMOLYTIC AUTOIMMUNE [None]
  - PSEUDOMONAS TEST POSITIVE [None]
